FAERS Safety Report 9415726 (Version 2)
Quarter: 2018Q2

REPORT INFORMATION
  Report Type: Spontaneous
  Country: US (occurrence: US)
  Receive Date: 20130723
  Receipt Date: 20180411
  Transmission Date: 20180711
  Serious: No
  Sender: FDA-Public Use
  Company Number: US-009507513-1307USA010483

PATIENT
  Age: 30 Year
  Sex: Female

DRUGS (6)
  1. ATAZANAVIR SULFATE. [Suspect]
     Active Substance: ATAZANAVIR SULFATE
     Dosage: 300, THIRD TRIMESTER
     Route: 048
  2. ATAZANAVIR SULFATE. [Suspect]
     Active Substance: ATAZANAVIR SULFATE
     Dosage: 600, THIRD TRIMESTER, BEGAN AT GEST. WEEK 31
     Route: 048
  3. EMTRICITABINE (+) TENOFOVIR DISOPROXIL FUMARATE [Suspect]
     Active Substance: EMTRICITABINE\TENOFOVIR DISOPROXIL
     Dosage: 1 DF, FIRST TRIMESTER, BEGAN AT GEST. WEEK 0
     Route: 048
  4. ISENTRESS [Suspect]
     Active Substance: RALTEGRAVIR POTASSIUM
     Dosage: 800, FIRST TRIMESTER, BEGAN AT GEST. WEEK 0
     Route: 048
  5. ATAZANAVIR SULFATE. [Suspect]
     Active Substance: ATAZANAVIR SULFATE
     Dosage: 300, SECOND TRIMESTER, BEGAN AT GEST. WEEK 20
     Route: 048
  6. RITONAVIR. [Suspect]
     Active Substance: RITONAVIR
     Dosage: 100, SECOND TRIMESTER, BEGAN AT GEST. WEEK 20
     Route: 048

REACTIONS (1)
  - Exposure during pregnancy [Recovered/Resolved]
